FAERS Safety Report 4866021-X (Version None)
Quarter: 2005Q4

REPORT INFORMATION
  Report Type: 
  Country: None (occurrence: None)
  Receive Date: 20051221
  Receipt Date: 20051201
  Transmission Date: 20060501
  Serious: Yes (Hospitalization, Other)
  Sender: FDA-Public Use
  Company Number: 200514620BCC

PATIENT
  Age: 68 Year
  Sex: Female
  Weight: 64.4108 kg

DRUGS (3)
  1. GENUINE BAYER (ACETYLSALICYLIC ACID) [Suspect]
     Indication: MYOCARDIAL INFARCTION
     Dosage: 325 MG, ORAL
     Route: 048
     Dates: start: 19950101
  2. GENUINE BAYER (ACETYLSALICYLIC ACID) [Suspect]
     Indication: MYOCARDIAL INFARCTION
     Dosage: 325 MG, ORAL
     Route: 048
     Dates: start: 20000301
  3. LIPITOR [Concomitant]

REACTIONS (7)
  - ARTERIOSCLEROSIS [None]
  - BLOOD CHOLESTEROL INCREASED [None]
  - BLOOD PRESSURE SYSTOLIC DECREASED [None]
  - CORONARY ARTERY OCCLUSION [None]
  - DISEASE PROGRESSION [None]
  - MYOCARDIAL INFARCTION [None]
  - VOMITING [None]
